FAERS Safety Report 8638109 (Version 2)
Quarter: 2014Q1

REPORT INFORMATION
  Report Type: Spontaneous
  Country: US (occurrence: None)
  Receive Date: 20120323
  Receipt Date: 20130305
  Transmission Date: 20141002
  Serious: Yes (Other)
  Sender: FDA-Public Use
  Company Number: 163-21880-11092187

PATIENT
  Age: 59 Year
  Sex: Female
  Weight: 86.64 kg

DRUGS (9)
  1. REVLIMID [Suspect]
     Indication: PLASMA CELL MYELOMA
     Dosage: 10 MG, 1 IN 1 D, PO, 5 MG, 1 IN 2 D, PO , 5 MG, 1 IN 1 D, PO
     Route: 048
     Dates: start: 20110718, end: 20110908
  2. ZOMETA [Concomitant]
  3. COUMADIN [Concomitant]
  4. IMODIUM (LOPERAMIDE HYDROCHLORIDE)  (UNKNOWN) [Concomitant]
  5. CARAFATE [Concomitant]
  6. SYNTHROID [Concomitant]
  7. ATIVAN [Concomitant]
  8. OXYCODONE (OXYCODONE)(UNKNOWN) [Concomitant]
  9. REGLAN (METOCLOPRAMIDE)(UNKNOWN) [Concomitant]

REACTIONS (4)
  - Neutropenia [None]
  - Platelet count decreased [None]
  - White blood cell count decreased [None]
  - Full blood count decreased [None]
